FAERS Safety Report 7297859-X (Version None)
Quarter: 2011Q1

REPORT INFORMATION
  Report Type: 
  Country: None (occurrence: None)
  Receive Date: 20110217
  Receipt Date: 20101129
  Transmission Date: 20110831
  Serious: No
  Sender: FDA-Public Use
  Company Number: US-KINGPHARMUSA00001-K201001445

PATIENT
  Age: 69 Year
  Sex: Male
  Weight: 73.923 kg

DRUGS (3)
  1. FLECTOR [Suspect]
     Indication: BACK PAIN
     Dosage: 1 PATCH, BID
     Route: 061
     Dates: start: 20101121, end: 20101128
  2. BENICAR [Concomitant]
     Indication: HYPERTENSION
     Dosage: 5 MG, BID
  3. COREG [Concomitant]
     Indication: HYPERTENSION
     Dosage: 25 MG, BID

REACTIONS (1)
  - BLOOD PRESSURE SYSTOLIC INCREASED [None]
